FAERS Safety Report 19723749 (Version 1)
Quarter: 2021Q3

REPORT INFORMATION
  Report Type: Spontaneous
  Country: DE (occurrence: DE)
  Receive Date: 20210820
  Receipt Date: 20210820
  Transmission Date: 20211014
  Serious: Yes (Hospitalization)
  Sender: FDA-Public Use
  Company Number: DE-AUROBINDO-AUR-APL-2011-01697

PATIENT
  Age: 42 Year
  Sex: Male
  Weight: 100 kg

DRUGS (6)
  1. SIMVASTATIN 40MG [Suspect]
     Active Substance: SIMVASTATIN
     Indication: ACUTE MYOCARDIAL INFARCTION
     Dosage: 40 MILLIGRAM, DAILY(40 MG,DAILY,)
     Route: 048
     Dates: start: 20110325, end: 20110415
  2. ASPIRIN. [Concomitant]
     Active Substance: ASPIRIN
     Indication: STENT PLACEMENT
     Dosage: 100 MILLIGRAM, DAILY(100 MG,DAILY,)
     Route: 048
     Dates: start: 20110325
  3. METOPROLOL. [Concomitant]
     Active Substance: METOPROLOL
     Indication: ACUTE MYOCARDIAL INFARCTION
     Dosage: 47.5 MILLIGRAM, DAILY
     Route: 048
     Dates: start: 20110325
  4. RAMIPRIL 5MG [Suspect]
     Active Substance: RAMIPRIL
     Indication: ACUTE MYOCARDIAL INFARCTION
     Dosage: 5 MG,TWO TIMES A DAY,
     Route: 048
     Dates: start: 20110325, end: 20110418
  5. PARACETAMOL [Suspect]
     Active Substance: ACETAMINOPHEN
     Indication: PAIN
     Dosage: 500 MG,TWO TIMES A DAY,
     Route: 048
     Dates: start: 20110414, end: 20110417
  6. PLAVIX [Concomitant]
     Active Substance: CLOPIDOGREL BISULFATE
     Indication: STENT PLACEMENT
     Dosage: 75 MILLIGRAM, DAILY(V0
     Route: 048
     Dates: start: 20110325

REACTIONS (4)
  - Acute hepatic failure [Not Recovered/Not Resolved]
  - Cholelithiasis [Not Recovered/Not Resolved]
  - Liver injury [Not Recovered/Not Resolved]
  - Cholecystitis chronic [Not Recovered/Not Resolved]

NARRATIVE: CASE EVENT DATE: 20110412
